FAERS Safety Report 7350297-3 (Version None)
Quarter: 2011Q1

REPORT INFORMATION
  Report Type: 
  Country: None (occurrence: None)
  Receive Date: 20110314
  Receipt Date: 20110304
  Transmission Date: 20110831
  Serious: Yes (Life-Threatening)
  Sender: FDA-Public Use
  Company Number: GB-ELI_LILLY_AND_COMPANY-GB201103001293

PATIENT
  Age: 22 Year
  Sex: Female
  Weight: 54.1 kg

DRUGS (4)
  1. DIAZEPAM [Concomitant]
  2. MULTI-VITAMIN [Concomitant]
  3. ZYPREXA [Suspect]
     Route: 048
     Dates: start: 20101201
  4. FORTISIP [Concomitant]

REACTIONS (2)
  - WHITE BLOOD CELL COUNT DECREASED [None]
  - NEUTROPENIA [None]
